FAERS Safety Report 5140530-0 (Version None)
Quarter: 2006Q4

REPORT INFORMATION
  Report Type: 
  Country: None (occurrence: None)
  Receive Date: 20061025
  Receipt Date: 20061023
  Transmission Date: 20070319
  Serious: Yes (Other)
  Sender: FDA-Public Use
  Company Number: 132266

PATIENT
  Age: 71 Year
  Sex: Male

DRUGS (2)
  1. SOLARAZE GEL [Suspect]
     Indication: ACTINIC KERATOSIS
     Dosage: TOPICAL APPLICATION BID
     Route: 061
     Dates: start: 20060626, end: 20060717
  2. COLLYRIUM BETA ADRENERGIC BLOCKING AGENT [Concomitant]

REACTIONS (1)
  - BRADYCARDIA [None]
